FAERS Safety Report 17177515 (Version 1)
Quarter: 2019Q4

REPORT INFORMATION
  Report Type: Spontaneous
  Country: JP (occurrence: JP)
  Receive Date: 20191219
  Receipt Date: 20191219
  Transmission Date: 20200122
  Serious: Yes (Other)
  Sender: FDA-Public Use
  Company Number: JP-GLAXOSMITHKLINE-JP2019JPN176397

PATIENT
  Sex: Female
  Weight: 47 kg

DRUGS (5)
  1. BREDININ [Concomitant]
     Active Substance: MIZORIBINE
     Dosage: 350 MG, 3 TIMES A WEEK
  2. DAIPHEN [Concomitant]
     Active Substance: SULFAMETHOXAZOLE\TRIMETHOPRIM
     Dosage: 1 DF, 1D
  3. RINDERON [Concomitant]
     Dosage: 4 MG, 1D
  4. RITUXIMAB (GENETICAL RECOMBINATION) [Concomitant]
     Active Substance: RITUXIMAB
     Dosage: 375 MG/M2, UNK
  5. BENLYSTA [Suspect]
     Active Substance: BELIMUMAB
     Dosage: UNK
     Route: 041
     Dates: start: 20190411, end: 2019

REACTIONS (4)
  - Herpes zoster cutaneous disseminated [Recovered/Resolved]
  - Rash [Recovered/Resolved]
  - Pain [Recovered/Resolved]
  - Blister [Recovered/Resolved]

NARRATIVE: CASE EVENT DATE: 20190413
